FAERS Safety Report 8823356 (Version 1)
Quarter: 2012Q4

REPORT INFORMATION
  Report Type: 
  Country: US (occurrence: US)
  Receive Date: 20121003
  Receipt Date: 20121003
  Transmission Date: 20130627
  Serious: Yes (Hospitalization, Other)
  Sender: FDA-Public Use
  Company Number: US-BRISTOL-MYERS SQUIBB COMPANY-16988925

PATIENT
  Age: 46 Year
  Sex: Male
  Weight: 86 kg

DRUGS (4)
  1. METOPROLOL TARTRATE [Suspect]
     Indication: ANGINA PECTORIS
  2. CLOPIDOGREL BISULFATE [Suspect]
     Dates: start: 2012
  3. ASPIRIN [Suspect]
     Indication: ANGINA PECTORIS
  4. NITROGLYCERIN [Suspect]
     Indication: ANGINA PECTORIS

REACTIONS (11)
  - Angina pectoris [Not Recovered/Not Resolved]
  - Haemoptysis [Not Recovered/Not Resolved]
  - Dysgeusia [Not Recovered/Not Resolved]
  - Fatigue [Not Recovered/Not Resolved]
  - Nausea [Not Recovered/Not Resolved]
  - Confusional state [Not Recovered/Not Resolved]
  - Skin disorder [Not Recovered/Not Resolved]
  - Gastric disorder [Not Recovered/Not Resolved]
  - Pyrexia [Not Recovered/Not Resolved]
  - Weight decreased [Not Recovered/Not Resolved]
  - Dyspnoea [Not Recovered/Not Resolved]
